FAERS Safety Report 14838612 (Version 2)
Quarter: 2018Q4

REPORT INFORMATION
  Report Type: Spontaneous
  Country: FR (occurrence: FR)
  Receive Date: 20180502
  Receipt Date: 20181011
  Transmission Date: 20190204
  Serious: Yes (Hospitalization)
  Sender: FDA-Public Use
  Company Number: FR-MYLANLABS-2018M1027584

PATIENT
  Age: 84 Year
  Sex: Male
  Weight: 68 kg

DRUGS (27)
  1. KARDEGIC [Concomitant]
     Active Substance: ASPIRIN DL-LYSINE
     Indication: CEREBROVASCULAR ACCIDENT
     Dosage: 75 MILLIGRAM
     Route: 048
     Dates: start: 20161201
  2. LANTUS [Concomitant]
     Active Substance: INSULIN GLARGINE
     Indication: RENAL FAILURE
     Dosage: UNK
  3. FLURBIPROFEN. [Concomitant]
     Active Substance: FLURBIPROFEN
     Indication: SURGERY
     Dosage: 4 DOSAGE FORMS
     Route: 047
  4. COMBODART [Concomitant]
     Active Substance: DUTASTERIDE\TAMSULOSIN
     Indication: PRODUCT USED FOR UNKNOWN INDICATION
     Dosage: UNK
     Route: 065
  5. VISMED [Concomitant]
     Active Substance: HYALURONATE SODIUM
     Indication: SURGERY
     Dosage: 1 DF, UNK
     Route: 047
  6. JOSIR [Concomitant]
     Active Substance: TAMSULOSIN
     Indication: DYSURIA
     Dosage: .4 MILLIGRAM
     Route: 048
     Dates: start: 20170503
  7. BACLOFEN. [Concomitant]
     Active Substance: BACLOFEN
     Indication: TRANSIENT ISCHAEMIC ATTACK
     Dosage: 30 MILLIGRAM
     Route: 048
     Dates: start: 20170527
  8. PANTOPRAZOLE [Concomitant]
     Active Substance: PANTOPRAZOLE
     Indication: CEREBROVASCULAR ACCIDENT
     Dosage: 20 MILLIGRAM
     Route: 048
  9. INNOHEP [Concomitant]
     Active Substance: TINZAPARIN SODIUM
     Indication: TRANSIENT ISCHAEMIC ATTACK
     Dosage: 1400 IU (INTERNATIONAL UNIT)
     Route: 058
     Dates: start: 20170526
  10. DEXAMETHASONE. [Suspect]
     Active Substance: DEXAMETHASONE
     Indication: PLASMA CELL MYELOMA
     Dosage: 20 MG, UNK
     Route: 065
  11. BLOOD CELLS, PACKED HUMAN [Concomitant]
     Active Substance: HUMAN RED BLOOD CELL
     Indication: ANAEMIA
     Dosage: UNK
     Route: 065
  12. COVERAM [Concomitant]
     Active Substance: AMLODIPINE\PERINDOPRIL
     Indication: CEREBROVASCULAR ACCIDENT
     Dosage: 10 MILLIGRAM
     Route: 048
  13. ACUPAN [Concomitant]
     Active Substance: NEFOPAM HYDROCHLORIDE
     Indication: BACK PAIN
     Dosage: UNK
     Route: 065
  14. LANTUS [Concomitant]
     Active Substance: INSULIN GLARGINE
     Indication: DIABETES MELLITUS
  15. XATRAL                             /00975301/ [Concomitant]
     Active Substance: ALFUZOSIN
     Indication: URINARY RETENTION
     Dosage: 10 MILLIGRAM
     Route: 048
     Dates: start: 20170209
  16. REVLIMID [Suspect]
     Active Substance: LENALIDOMIDE
     Indication: PLASMA CELL MYELOMA
     Dosage: 25 MILLIGRAM
     Route: 048
     Dates: start: 20161202, end: 20170919
  17. IMODIUM [Concomitant]
     Active Substance: LOPERAMIDE HYDROCHLORIDE
     Indication: DIARRHOEA
     Dosage: 2 MG, UNK
     Route: 048
  18. ZELITREX [Concomitant]
     Active Substance: VALACYCLOVIR HYDROCHLORIDE
     Indication: ANTIVIRAL PROPHYLAXIS
     Dosage: 1000 MILLIGRAM
     Route: 048
     Dates: start: 20161201
  19. INEXIUM                            /01479302/ [Concomitant]
     Active Substance: ESOMEPRAZOLE MAGNESIUM
     Indication: PROPHYLAXIS
     Dosage: 20 MILLIGRAM
     Route: 048
     Dates: start: 20161201
  20. ORACILLINE                         /00001801/ [Concomitant]
     Active Substance: PENICILLIN V
     Indication: PROPHYLAXIS
     Dosage: 1 IU (INTERNATIONAL UNIT)
     Route: 048
     Dates: start: 20161201
  21. LAMALINE                           /00764901/ [Concomitant]
     Active Substance: ACETAMINOPHEN\BELLADONNA LEAF\CAFFEINE\OPIUM
     Indication: CHONDROCALCINOSIS
     Dosage: UNK
     Route: 065
  22. DEXAMETHASONE. [Suspect]
     Active Substance: DEXAMETHASONE
     Dosage: DOSE REDUCTION
     Route: 065
  23. HUMALOG [Concomitant]
     Active Substance: INSULIN LISPRO
     Indication: DIABETES MELLITUS
     Dosage: 24 IU (INTERNATIONAL UNIT)
     Route: 058
     Dates: start: 20170124
  24. PERFALGAN [Concomitant]
     Active Substance: ACETAMINOPHEN
     Indication: BACK PAIN
     Route: 065
  25. LANTUS [Concomitant]
     Active Substance: INSULIN GLARGINE
     Indication: DIABETES MELLITUS
     Dosage: 18 IU (INTERNATIONAL UNIT)
     Route: 058
     Dates: start: 20170124
  26. LANTUS [Concomitant]
     Active Substance: INSULIN GLARGINE
     Indication: RENAL FAILURE
  27. PARACETAMOL [Concomitant]
     Active Substance: ACETAMINOPHEN
     Indication: TRANSIENT ISCHAEMIC ATTACK
     Dosage: 500 MG, UNK
     Route: 048

REACTIONS (2)
  - Transient ischaemic attack [Recovered/Resolved]
  - Urinary retention [Recovered/Resolved]

NARRATIVE: CASE EVENT DATE: 20170925
